FAERS Safety Report 22144834 (Version 1)
Quarter: 2023Q1

REPORT INFORMATION
  Report Type: Spontaneous
  Country: CN (occurrence: CN)
  Receive Date: 20230328
  Receipt Date: 20230328
  Transmission Date: 20230417
  Serious: Yes (Other)
  Sender: FDA-Public Use
  Company Number: CN-ABBOTT-2023A-1361508

PATIENT
  Age: 66 Year
  Sex: Female
  Weight: 44 kg

DRUGS (1)
  1. FENOFIBRATE [Suspect]
     Active Substance: FENOFIBRATE
     Indication: Hypertriglyceridaemia
     Dosage: CUMULATIVE DOSE -4200 MG
     Route: 048
     Dates: start: 20230302, end: 20230322

REACTIONS (1)
  - Hepatic function abnormal [Unknown]

NARRATIVE: CASE EVENT DATE: 20230322
